FAERS Safety Report 18565480 (Version 11)
Quarter: 2022Q2

REPORT INFORMATION
  Report Type: Report from Study
  Country: CA (occurrence: CA)
  Receive Date: 20201201
  Receipt Date: 20220516
  Transmission Date: 20220721
  Serious: Yes (Hospitalization)
  Sender: FDA-Public Use
  Company Number: CA-PFIZER INC-2020467614

PATIENT
  Age: 43 Year
  Sex: Female
  Weight: 53.3 kg

DRUGS (30)
  1. IRINOTECAN HYDROCHLORIDE [Suspect]
     Active Substance: IRINOTECAN HYDROCHLORIDE
     Indication: Colorectal cancer metastatic
     Dosage: 180 MG/M2, CYCLIC (QOW)
     Route: 042
     Dates: start: 20200916, end: 20201022
  2. IRINOTECAN HYDROCHLORIDE [Suspect]
     Active Substance: IRINOTECAN HYDROCHLORIDE
     Dosage: 180 MG/M2, CYCLIC (QOW)
     Route: 042
     Dates: start: 20201105, end: 20201105
  3. IRINOTECAN HYDROCHLORIDE [Suspect]
     Active Substance: IRINOTECAN HYDROCHLORIDE
     Dosage: 180 MG/M2, CYCLIC (QOW)
     Route: 042
     Dates: start: 20201119, end: 20201119
  4. IRINOTECAN HYDROCHLORIDE [Suspect]
     Active Substance: IRINOTECAN HYDROCHLORIDE
     Dosage: 180 MG/M2, CYCLIC (QOW)
     Route: 042
     Dates: start: 20201203, end: 20210527
  5. BINIMETINIB [Suspect]
     Active Substance: BINIMETINIB
     Indication: Colorectal cancer metastatic
     Dosage: 45 MILLIGRAM, BID
     Route: 048
     Dates: start: 20200916, end: 20200923
  6. BINIMETINIB [Suspect]
     Active Substance: BINIMETINIB
     Dosage: 45 MILLIGRAM, BID
     Route: 048
     Dates: start: 20200924, end: 20200924
  7. LEUCOVORIN [Suspect]
     Active Substance: LEUCOVORIN
     Indication: Colorectal cancer metastatic
     Dosage: 400 MG/M2, CYCLIC (QOW)
     Route: 042
     Dates: start: 20200916, end: 20201022
  8. LEUCOVORIN [Suspect]
     Active Substance: LEUCOVORIN
     Dosage: 400 MG/M2, CYCLIC (QOW)
     Route: 042
     Dates: start: 20201105, end: 20201105
  9. LEUCOVORIN [Suspect]
     Active Substance: LEUCOVORIN
     Dosage: 400 MG/M2, CYCLIC (QOW)
     Route: 042
     Dates: start: 20201119, end: 20201119
  10. LEUCOVORIN [Suspect]
     Active Substance: LEUCOVORIN
     Dosage: 400 MG/M2, CYCLIC (QOW)
     Route: 042
     Dates: start: 20201203, end: 20210527
  11. FLUOROURACIL [Suspect]
     Active Substance: FLUOROURACIL
     Indication: Colorectal cancer metastatic
     Dosage: 2400 MG/M2, CYCLIC (QOW)
     Route: 042
     Dates: start: 20200916, end: 20201024
  12. FLUOROURACIL [Suspect]
     Active Substance: FLUOROURACIL
     Dosage: 2400 MG/M2, CYCLIC (QOW)
     Route: 042
     Dates: start: 20201105, end: 20201107
  13. FLUOROURACIL [Suspect]
     Active Substance: FLUOROURACIL
     Dosage: 2400 MG/M2, CYCLIC (QOW)
     Route: 042
     Dates: start: 20201203, end: 20210529
  14. PEMBROLIZUMAB [Suspect]
     Active Substance: PEMBROLIZUMAB
     Indication: Colorectal cancer metastatic
     Dosage: 200 MG, EVERY 3 WEEKS
     Route: 042
     Dates: start: 20200916, end: 20201014
  15. PEMBROLIZUMAB [Suspect]
     Active Substance: PEMBROLIZUMAB
     Dosage: 200 MG, EVERY 3 WEEKS (VOLUME OF INFUSION: 58 ML)
     Route: 042
     Dates: start: 20201105, end: 20201105
  16. PEMBROLIZUMAB [Suspect]
     Active Substance: PEMBROLIZUMAB
     Dosage: 200 MG, EVERY 3 WEEKS
     Route: 042
     Dates: start: 20201126, end: 20210520
  17. ONDANSETRON [Concomitant]
     Active Substance: ONDANSETRON
     Dosage: 24 MILLIGRAM
     Dates: start: 20200916, end: 20210527
  18. ONDANSETRON [Concomitant]
     Active Substance: ONDANSETRON
     Dosage: 8 MILLIGRAM
     Dates: start: 20200917, end: 20210530
  19. ATROPINE [Concomitant]
     Active Substance: ATROPINE
     Dosage: 0.4 MILLIGRAM
     Route: 058
     Dates: start: 20200916, end: 20210204
  20. SINGULAIR [Concomitant]
     Active Substance: MONTELUKAST SODIUM
     Dosage: 10 MILLIGRAM
     Dates: start: 20201022, end: 20210527
  21. ASPIRIN [Concomitant]
     Active Substance: ASPIRIN
     Dosage: 325 MILLIGRAM
     Dates: start: 20201022, end: 20201202
  22. DEXAMETHASONE [Concomitant]
     Active Substance: DEXAMETHASONE
     Dosage: 10 MILLIGRAM
     Dates: start: 20201022, end: 20210527
  23. FAMOTIDINE [Concomitant]
     Active Substance: FAMOTIDINE
     Indication: Infusion related reaction
     Dosage: 20 MILLIGRAM
     Route: 042
     Dates: start: 20201022, end: 20210527
  24. DIPHENHYDRAMINE [Concomitant]
     Active Substance: DIPHENHYDRAMINE
     Dosage: 50 MILLIGRAM
     Dates: start: 20201022, end: 20210106
  25. LORATADINE [Concomitant]
     Active Substance: LORATADINE
     Dosage: 10 MILLIGRAM
     Dates: start: 20201022, end: 20210527
  26. VITAMIN D NOS [Concomitant]
     Active Substance: VITAMIN D NOS
     Dosage: 10000 INTERNATIONAL UNIT
     Dates: start: 20201102, end: 20201202
  27. PEGFILGRASTIM [Concomitant]
     Active Substance: PEGFILGRASTIM
     Dosage: 6 MICROGRAM
     Dates: start: 20201023, end: 20210529
  28. METAMUCIL [Concomitant]
     Active Substance: PLANTAGO SEED
     Dosage: 7 GRAM
     Dates: start: 20201005, end: 20201125
  29. PROCHLORPERAZINE MALEATE [Concomitant]
     Active Substance: PROCHLORPERAZINE MALEATE
     Dosage: 10 MILLIGRAM
     Dates: start: 20201022, end: 20210530
  30. LOPERAMIDE [Concomitant]
     Active Substance: LOPERAMIDE
     Dosage: 4 MILLIGRAM
     Dates: start: 20201023, end: 20210530

REACTIONS (1)
  - Infusion related reaction [Recovered/Resolved]

NARRATIVE: CASE EVENT DATE: 20201105
